FAERS Safety Report 17482182 (Version 1)
Quarter: 2020Q1

REPORT INFORMATION
  Report Type: Spontaneous
  Country: GR (occurrence: GR)
  Receive Date: 20200302
  Receipt Date: 20200302
  Transmission Date: 20200409
  Serious: Yes (Hospitalization, Other)
  Sender: FDA-Public Use
  Company Number: NVSC2020GR057514

PATIENT
  Age: 82 Year
  Sex: Male

DRUGS (4)
  1. ENOXAPARIN SODIUM. [Concomitant]
     Active Substance: ENOXAPARIN SODIUM
     Indication: PROPHYLAXIS
     Dosage: 4000 IU, QD
     Route: 058
  2. TIGECYCLINE. [Suspect]
     Active Substance: TIGECYCLINE
     Indication: MEDICAL DEVICE SITE JOINT INFECTION
     Dosage: 200 MG (LOADING DOSE)
     Route: 065
  3. TIGECYCLINE. [Suspect]
     Active Substance: TIGECYCLINE
     Dosage: 100 MG, BID
     Route: 065
  4. MEROPENEM. [Concomitant]
     Active Substance: MEROPENEM
     Indication: MEDICAL DEVICE SITE JOINT INFECTION
     Dosage: 2 G, TID
     Route: 042

REACTIONS (2)
  - Haemarthrosis [Recovered/Resolved]
  - Hypofibrinogenaemia [Recovered/Resolved]
